FAERS Safety Report 17911018 (Version 1)
Quarter: 2020Q2

REPORT INFORMATION
  Report Type: Spontaneous
  Country: KZ (occurrence: KZ)
  Receive Date: 20200618
  Receipt Date: 20200618
  Transmission Date: 20200714
  Serious: Yes (Hospitalization)
  Sender: FDA-Public Use
  Company Number: KZ-TEVA-2020-KZ-1245758

PATIENT
  Age: 31 Month
  Sex: Male

DRUGS (1)
  1. SUMAMED [Suspect]
     Active Substance: AZITHROMYCIN ANHYDROUS
     Indication: RESPIRATORY TRACT INFECTION VIRAL
     Dosage: SUSPENSION
     Route: 065

REACTIONS (5)
  - Skin test positive [Recovering/Resolving]
  - Rash [Recovering/Resolving]
  - Toxic epidermal necrolysis [Unknown]
  - Obstruction [Recovering/Resolving]
  - Hepatitis toxic [Recovering/Resolving]

NARRATIVE: CASE EVENT DATE: 202005
